FAERS Safety Report 18860394 (Version 1)
Quarter: 2021Q1

REPORT INFORMATION
  Report Type: Spontaneous
  Country: DE (occurrence: DE)
  Receive Date: 20210208
  Receipt Date: 20210208
  Transmission Date: 20210420
  Serious: Yes (Hospitalization, Other)
  Sender: FDA-Public Use
  Company Number: DE-GLAXOSMITHKLINE-DE2020243473

PATIENT
  Sex: Female
  Weight: 55 kg

DRUGS (1)
  1. RELVAR ELLIPTA [Suspect]
     Active Substance: FLUTICASONE FUROATE\VILANTEROL TRIFENATATE
     Indication: PRODUCT USED FOR UNKNOWN INDICATION
     Dosage: UNK, QD
     Dates: start: 201707, end: 202011

REACTIONS (19)
  - Swelling face [Recovered/Resolved]
  - Syncope [Recovered/Resolved]
  - Hypotension [Unknown]
  - Paraesthesia [Unknown]
  - Pulse pressure decreased [Unknown]
  - Respiratory disorder [Unknown]
  - Rhinorrhoea [Unknown]
  - Lip swelling [Recovered/Resolved]
  - Urticaria [Unknown]
  - Eye pain [Unknown]
  - Face oedema [Unknown]
  - Oropharyngeal discomfort [Unknown]
  - Erythema [Unknown]
  - Rash [Unknown]
  - Anaphylactic reaction [Recovered/Resolved]
  - Throat tightness [Recovered/Resolved]
  - Sneezing [Unknown]
  - Angioedema [Recovered/Resolved]
  - Nausea [Unknown]

NARRATIVE: CASE EVENT DATE: 2019
